FAERS Safety Report 23383992 (Version 1)
Quarter: 2024Q1

REPORT INFORMATION
  Report Type: Spontaneous
  Country: US (occurrence: None)
  Receive Date: 20240109
  Receipt Date: 20240109
  Transmission Date: 20240410
  Serious: Yes (Other)
  Sender: FDA-Public Use
  Company Number: None

PATIENT
  Sex: Female

DRUGS (23)
  1. SPRAVATO [Suspect]
     Active Substance: ESKETAMINE
     Indication: Major depression
     Dosage: FREQUENCY : TWICE A DAY;?
     Route: 045
     Dates: start: 20230908
  2. ADDERALL XR [Concomitant]
     Active Substance: AMPHETAMINE ASPARTATE\AMPHETAMINE SULFATE\DEXTROAMPHETAMINE SACCHARATE\DEXTROAMPHETAMINE SULFATE
  3. AIMOVIG [Concomitant]
     Active Substance: ERENUMAB-AOOE
  4. ALBUTEROL AER HFA [Concomitant]
  5. AZELASTINE SPR [Concomitant]
  6. BIOTIN HP [Concomitant]
  7. BUSPIRONE [Concomitant]
     Active Substance: BUSPIRONE HYDROCHLORIDE
  8. CYMBALTA [Concomitant]
     Active Substance: DULOXETINE HYDROCHLORIDE
  9. DIAZEPAM [Concomitant]
     Active Substance: DIAZEPAM
  10. ELETRIPTAN [Concomitant]
     Active Substance: ELETRIPTAN
  11. FLOVENT HFA AER [Concomitant]
  12. GABAPENTIN [Concomitant]
     Active Substance: GABAPENTIN
  13. LYSINE [Concomitant]
     Active Substance: LYSINE
  14. LISINOPRIL [Concomitant]
     Active Substance: LISINOPRIL
  15. LORATADINE [Concomitant]
     Active Substance: LORATADINE
  16. MELATONIN [Concomitant]
     Active Substance: MELATONIN
  17. METOCLOPRAMIDE [Concomitant]
     Active Substance: METOCLOPRAMIDE
  18. MULTIVITAMIN TAB ADULTS [Concomitant]
  19. POLYETHYLENE LIQ GLY [Concomitant]
  20. PREMARIN VAG CRE [Concomitant]
  21. TIZANIDINE [Concomitant]
     Active Substance: TIZANIDINE
  22. WELLBUTRIN XL [Concomitant]
     Active Substance: BUPROPION HYDROCHLORIDE
  23. ZOLPIDEM TARTRATE [Concomitant]
     Active Substance: ZOLPIDEM TARTRATE

REACTIONS (6)
  - Post procedural complication [None]
  - Headache [None]
  - Feeling abnormal [None]
  - Incorrect dose administered [None]
  - Complication associated with device [None]
  - Nasal obstruction [None]
